FAERS Safety Report 9979085 (Version 1)
Quarter: 2014Q1

REPORT INFORMATION
  Report Type: Report from Study
  Country: US (occurrence: US)
  Receive Date: 20140306
  Receipt Date: 20140306
  Transmission Date: 20141002
  Serious: No
  Sender: FDA-Public Use
  Company Number: US-ABBVIE-13P-163-1174012-00

PATIENT
  Age: 50 Year
  Sex: Female

DRUGS (12)
  1. HUMIRA [Suspect]
     Indication: RHEUMATOID ARTHRITIS
     Dates: start: 201108
  2. FISH OIL [Suspect]
     Indication: ALOPECIA
  3. METHOTREXATE [Concomitant]
     Indication: RHEUMATOID ARTHRITIS
  4. TRAMADOL [Concomitant]
     Indication: PAIN
  5. IBUPROFEN [Concomitant]
     Indication: PAIN
  6. FLEXERIL [Concomitant]
     Indication: MYALGIA
  7. LIPITOR [Concomitant]
     Indication: BLOOD CHOLESTEROL INCREASED
  8. LISINOPRIL [Concomitant]
     Indication: HYPERTENSION
     Dosage: 12.5/20
  9. FOLIC ACID [Concomitant]
     Indication: VITAMIN SUPPLEMENTATION
     Route: 048
  10. LEVOTHYROXINE [Concomitant]
     Indication: THYROID FUNCTION TEST ABNORMAL
  11. LEVOTHYROXINE [Concomitant]
  12. B-12 [Concomitant]
     Indication: VITAMIN SUPPLEMENTATION
     Route: 048

REACTIONS (5)
  - Asthenia [Recovering/Resolving]
  - Thyroid function test abnormal [Recovered/Resolved]
  - Alopecia [Recovering/Resolving]
  - Nausea [Recovering/Resolving]
  - Sinusitis [Recovering/Resolving]
